FAERS Safety Report 7429878-4 (Version None)
Quarter: 2011Q2

REPORT INFORMATION
  Report Type: 
  Country: None (occurrence: None)
  Receive Date: 20110411
  Receipt Date: 20110411
  Transmission Date: 20111010
  Serious: Yes (Other)
  Sender: FDA-Public Use
  Company Number: None

PATIENT
  Age: 21 Year
  Sex: Female
  Weight: 79.8331 kg

DRUGS (3)
  1. LYRICA [Suspect]
     Indication: PAIN
     Dosage: 200MG TWICE DAILY PO
     Route: 048
     Dates: start: 20101227, end: 20110418
  2. LYRICA [Suspect]
     Indication: INTERVERTEBRAL DISC DISORDER
     Dosage: 200MG TWICE DAILY PO
     Route: 048
     Dates: start: 20101227, end: 20110418
  3. LYRICA [Suspect]
     Indication: SPINAL CORD INJURY
     Dosage: 200MG TWICE DAILY PO
     Route: 048
     Dates: start: 20101227, end: 20110418

REACTIONS (9)
  - WEIGHT INCREASED [None]
  - ANXIETY [None]
  - TACHYCARDIA [None]
  - DYSPNOEA [None]
  - SUICIDAL IDEATION [None]
  - HYPERHIDROSIS [None]
  - ACTIVITIES OF DAILY LIVING IMPAIRED [None]
  - WITHDRAWAL SYNDROME [None]
  - AGGRESSION [None]
